FAERS Safety Report 6132404-3 (Version None)
Quarter: 2009Q1

REPORT INFORMATION
  Report Type: 
  Country: None (occurrence: None)
  Receive Date: 20090325
  Receipt Date: 20090318
  Transmission Date: 20090719
  Serious: No
  Sender: FDA-Public Use
  Company Number: US-B.I. PHARMACEUTICALS,INC./RIDGEFIELD-2009-BP-03420BP

PATIENT
  Age: 61 Year
  Sex: Female

DRUGS (6)
  1. SPIRIVA [Suspect]
     Dosage: 18MCG
     Route: 055
     Dates: start: 20090301
  2. NEURONTIN [Concomitant]
     Indication: FIBROMYALGIA
  3. PRAVASTATIN [Concomitant]
     Indication: BLOOD CHOLESTEROL INCREASED
  4. ACTONEL [Concomitant]
     Indication: OSTEOPOROSIS
  5. XANAX [Concomitant]
  6. DILTIAZEM [Concomitant]
     Indication: ARTERIOSCLEROSIS CORONARY ARTERY

REACTIONS (1)
  - DRY MOUTH [None]
